FAERS Safety Report 20050043 (Version 1)
Quarter: 2021Q4

REPORT INFORMATION
  Report Type: Spontaneous
  Country: US (occurrence: None)
  Receive Date: 20211109
  Receipt Date: 20211109
  Transmission Date: 20220303
  Serious: Yes (Life-Threatening)
  Sender: FDA-Public Use
  Company Number: None

PATIENT
  Age: 59 Year
  Sex: Female
  Weight: 61.23 kg

DRUGS (9)
  1. ADMELOG [Suspect]
     Active Substance: INSULIN LISPRO
     Indication: Type 1 diabetes mellitus
     Dosage: OTHER QUANTITY : 2 UNITS;?FREQUENCY : ONCE;?OTHER ROUTE : NJECTION;?
     Route: 050
     Dates: start: 20211015, end: 20211015
  2. NOVOLOG [Concomitant]
     Active Substance: INSULIN ASPART
  3. TIROSINT [Concomitant]
     Active Substance: LEVOTHYROXINE SODIUM
  4. DEVICE [Concomitant]
     Active Substance: DEVICE
  5. Freestyle Libre CGM [Concomitant]
  6. aceteminophen [Concomitant]
  7. CHLORPHENIRAMINE [Concomitant]
     Active Substance: CHLORPHENIRAMINE
  8. VitD+K2 [Concomitant]
  9. VitB12 [Concomitant]

REACTIONS (4)
  - Swollen tongue [None]
  - Pharyngeal swelling [None]
  - Dysphagia [None]
  - Dyspnoea [None]

NARRATIVE: CASE EVENT DATE: 20211014
